FAERS Safety Report 5916542-3 (Version None)
Quarter: 2008Q4

REPORT INFORMATION
  Report Type: 
  Country: None (occurrence: None)
  Receive Date: 20081013
  Receipt Date: 20081003
  Transmission Date: 20090506
  Serious: Yes (Hospitalization)
  Sender: FDA-Public Use
  Company Number: B0539997A

PATIENT
  Age: 80 Year
  Sex: Female

DRUGS (6)
  1. DEROXAT [Suspect]
     Indication: DRUG USE FOR UNKNOWN INDICATION
     Dosage: 20MG PER DAY
     Route: 048
  2. TERCIAN [Suspect]
     Dosage: 4DROP THREE TIMES PER DAY
     Route: 048
  3. EQUANIL [Concomitant]
     Route: 065
  4. PLAVIX [Concomitant]
     Route: 065
  5. CALCIDOSE [Concomitant]
     Route: 065
  6. MOVICOL [Concomitant]
     Route: 065

REACTIONS (12)
  - ANXIETY [None]
  - BLADDER DISTENSION [None]
  - DISORIENTATION [None]
  - DYSKINESIA [None]
  - EXTRAPYRAMIDAL DISORDER [None]
  - FALL [None]
  - HYPONATRAEMIA [None]
  - LEUKOCYTOSIS [None]
  - PNEUMONIA ASPIRATION [None]
  - RHABDOMYOLYSIS [None]
  - TACHYPNOEA [None]
  - URINARY RETENTION [None]
